FAERS Safety Report 14552149 (Version 1)
Quarter: 2018Q1

REPORT INFORMATION
  Report Type: Report from Study
  Country: US (occurrence: US)
  Receive Date: 20180220
  Receipt Date: 20180220
  Transmission Date: 20180509
  Serious: Yes (Other)
  Sender: FDA-Public Use
  Company Number: US-ROCHE-1434148

PATIENT
  Sex: Female

DRUGS (5)
  1. VALCYTE [Suspect]
     Active Substance: VALGANCICLOVIR HYDROCHLORIDE
     Indication: MALAISE
  2. VALCYTE [Suspect]
     Active Substance: VALGANCICLOVIR HYDROCHLORIDE
     Indication: CYTOMEGALOVIRUS INFECTION
  3. VALCYTE [Suspect]
     Active Substance: VALGANCICLOVIR HYDROCHLORIDE
     Indication: MENINGOENCEPHALITIS HERPETIC
  4. VALCYTE [Suspect]
     Active Substance: VALGANCICLOVIR HYDROCHLORIDE
     Indication: CHRONIC FATIGUE SYNDROME
     Dosage: 1 TABLET, LAST TREATMENT DOSE RECEIVED ON 07/NOV/2013?END DATE: 25/NOV/2015
     Route: 048
     Dates: start: 20131105
  5. VALCYTE [Suspect]
     Active Substance: VALGANCICLOVIR HYDROCHLORIDE
     Indication: FATIGUE

REACTIONS (8)
  - Oesophageal disorder [Unknown]
  - Oral herpes [Not Recovered/Not Resolved]
  - Dysphonia [Unknown]
  - Intentional product use issue [Unknown]
  - Cerebral disorder [Unknown]
  - Off label use [Unknown]
  - Malaise [Unknown]
  - Arthralgia [Not Recovered/Not Resolved]
